FAERS Safety Report 4539000-X (Version None)
Quarter: 2004Q4

REPORT INFORMATION
  Report Type: 
  Country: None (occurrence: None)
  Receive Date: 20041222
  Receipt Date: 20041202
  Transmission Date: 20050328
  Serious: Yes (Hospitalization, Other)
  Sender: FDA-Public Use
  Company Number: USA041285103

PATIENT
  Age: 82 Year
  Sex: Female

DRUGS (5)
  1. ZYPREXA [Suspect]
     Indication: DEMENTIA
     Dosage: 5 MG
     Dates: start: 20041102
  2. THYROID TAB [Concomitant]
  3. MULTIVITAMIN [Concomitant]
  4. ASPIRIN [Concomitant]
  5. TYLENOL [Concomitant]

REACTIONS (9)
  - ANTISOCIAL BEHAVIOUR [None]
  - COMA [None]
  - DYSARTHRIA [None]
  - FATIGUE [None]
  - HYPOTENSION [None]
  - INCREASED APPETITE [None]
  - NAUSEA [None]
  - SEDATION [None]
  - UNEXPECTED THERAPEUTIC DRUG EFFECT [None]
